FAERS Safety Report 18956707 (Version 2)
Quarter: 2021Q2

REPORT INFORMATION
  Report Type: Report from Study
  Country: NL (occurrence: NL)
  Receive Date: 20210302
  Receipt Date: 20210406
  Transmission Date: 20210717
  Serious: Yes (Hospitalization)
  Sender: FDA-Public Use
  Company Number: NL-ROCHE-2772928

PATIENT
  Age: 60 Year
  Sex: Female

DRUGS (8)
  1. TRASTUZUMAB. [Suspect]
     Active Substance: TRASTUZUMAB
     Dosage: MAINTENANCE DOSE?ON 05/FEB/2021, SHE RECEIVED THE MOST RECENT DOSE OF (384 MG) TRASTUZUMAB PRIOR TO
     Route: 042
  2. PERTUZUMAB. [Suspect]
     Active Substance: PERTUZUMAB
     Dosage: MAINTENANCE DOSE?ON 05/FEB/2021, SHE RECEIVED THE MOST RECENT DOSE OF PERTUZUMAB PRIOR TO ADVERSE EV
     Route: 042
  3. TOBRAMYCIN. [Concomitant]
     Active Substance: TOBRAMYCIN
     Dates: start: 20210216, end: 20210216
  4. PERTUZUMAB. [Suspect]
     Active Substance: PERTUZUMAB
     Indication: HER2 POSITIVE BREAST CANCER
     Dosage: LOADING DOSE
     Route: 042
     Dates: start: 20210115
  5. CEFUROXIME. [Concomitant]
     Active Substance: CEFUROXIME
     Route: 042
     Dates: start: 20210216, end: 20210218
  6. PACLITAXEL. [Suspect]
     Active Substance: PACLITAXEL
     Indication: HER2 POSITIVE BREAST CANCER
     Dosage: ON 12/FEB/2021, SHE RECEIVED THE MOST RECENT DOSE OF PACLITAXEL (130 MG) PRIOR TO ADVERSE EVENT ONSE
     Route: 042
     Dates: start: 20210115
  7. CARBOPLATIN. [Suspect]
     Active Substance: CARBOPLATIN
     Indication: HER2 POSITIVE BREAST CANCER
     Dosage: 6 AUC .ML/MIN?ON 05/FEB/2021, SHE RECEIVED THE MOST RECENT DOSE OF CARBOPLATIN (714 MG; 6 AUC.ML/MIN
     Route: 042
     Dates: start: 20210115
  8. TRASTUZUMAB. [Suspect]
     Active Substance: TRASTUZUMAB
     Indication: HER2 POSITIVE BREAST CANCER
     Dosage: LOADING DOSE
     Route: 042
     Dates: start: 20210115

REACTIONS (1)
  - Febrile neutropenia [Recovered/Resolved]

NARRATIVE: CASE EVENT DATE: 20210216
